FAERS Safety Report 7199102-9 (Version None)
Quarter: 2010Q4

REPORT INFORMATION
  Report Type: 
  Country: None (occurrence: None)
  Receive Date: 20101126
  Receipt Date: 20100916
  Transmission Date: 20110411
  Serious: Yes (Hospitalization)
  Sender: FDA-Public Use
  Company Number: CIP10002271

PATIENT
  Age: 69 Year
  Sex: Female

DRUGS (12)
  1. ACTONEL [Suspect]
     Dosage: 35 MG ONCE WEEKLY, ORAL ; 35 MG ONCE WEEKLY, ORAL
     Route: 048
     Dates: start: 20100801
  2. PREMARIN [Concomitant]
  3. PROVERA [Concomitant]
  4. GLUCOSAMINE CHONDROITIN (CHONDROITIN SULFATE, GLUCOSAMINE) [Concomitant]
  5. ERGOCALCIFEROL [Concomitant]
  6. CALCIUM (CALCIUM) [Concomitant]
  7. PANTOTHENIC ACID (PANTOTHENIC ACID) [Concomitant]
  8. VITAMIN B COMPLEX /00003501/ (CALCIUM PANTOTHENATE, NICOTINAMIDE, PYRI [Concomitant]
  9. VITAMIN C /00008001/ (ASCORBIC ACID) [Concomitant]
  10. VITAMIN E /00110501/ (TOCOPHEROL) [Concomitant]
  11. BETA CAROTENE (BETACAROTENE) [Concomitant]
  12. LYCOPENE (LYCOPENE) [Concomitant]

REACTIONS (3)
  - DENTAL IMPLANTATION [None]
  - FALL [None]
  - FEMUR FRACTURE [None]
